FAERS Safety Report 22186257 (Version 1)
Quarter: 2023Q2

REPORT INFORMATION
  Report Type: Report from Study
  Country: US (occurrence: US)
  Receive Date: 20230407
  Receipt Date: 20230407
  Transmission Date: 20230722
  Serious: No
  Sender: FDA-Public Use
  Company Number: US-002147023-NVSC2023US081100

PATIENT
  Age: 34 Year
  Sex: Female

DRUGS (2)
  1. NILOTINIB [Suspect]
     Active Substance: NILOTINIB
     Indication: Chronic myeloid leukaemia
     Dosage: 300 MG, BID
     Route: 048
     Dates: start: 2009, end: 2009
  2. NILOTINIB [Suspect]
     Active Substance: NILOTINIB
     Dosage: 150 MG (150MG (ONE PILL A DAY)
     Route: 048

REACTIONS (4)
  - Dizziness [Unknown]
  - Pruritus [Unknown]
  - Asthenia [Unknown]
  - Myalgia [Unknown]

NARRATIVE: CASE EVENT DATE: 20090101
